FAERS Safety Report 11864507 (Version 1)
Quarter: 2015Q4

REPORT INFORMATION
  Report Type: Other
  Country: FR (occurrence: FR)
  Receive Date: 20151223
  Receipt Date: 20151223
  Transmission Date: 20160305
  Serious: Yes (Hospitalization, Other)
  Sender: FDA-Public Use
  Company Number: FR-ASTELLAS-2015US047010

PATIENT
  Age: 34 Year
  Sex: Female

DRUGS (9)
  1. MONURIL [Concomitant]
     Active Substance: FOSFOMYCIN SODIUM
     Indication: CYSTITIS
     Dosage: 1 INTAKE, UNKNOWN FREQ.
     Route: 065
     Dates: start: 20151009
  2. LEXOMIL [Concomitant]
     Active Substance: BROMAZEPAM
     Indication: PRODUCT USED FOR UNKNOWN INDICATION
     Dosage: 0.25 TABLET, UNKNOWN FREQ.
     Route: 065
  3. DOLIPRANE [Concomitant]
     Active Substance: ACETAMINOPHEN
     Indication: CYSTITIS
     Dosage: UNK UNK, UNKNOWN FREQ. (FOR 5 DAYS)
     Route: 065
  4. VESICARE [Suspect]
     Active Substance: SOLIFENACIN SUCCINATE
     Indication: CYSTITIS
     Dosage: UNK UNK, UNKNOWN FREQ.(FOR 5 DAYS)
     Route: 065
     Dates: start: 20151021, end: 20151026
  5. SPASFON                            /00765801/ [Concomitant]
     Active Substance: PHLOROGLUCINOL\1,3,5-TRIMETHOXYBENZENE
     Indication: CYSTITIS
     Dosage: UNK UNK, UNKNOWN FREQ. (FOR 5 DAYS)
     Route: 065
  6. BACTRIM [Suspect]
     Active Substance: SULFAMETHOXAZOLE\TRIMETHOPRIM
     Indication: CYSTITIS
     Dosage: 800 MG, TWICE DAILY (MORNING AND NIGHT)
     Route: 048
     Dates: start: 20151021, end: 20151026
  7. POLYGINAX [Concomitant]
     Indication: CYSTITIS
     Dosage: UNK UNK, ONCE DAILY (PESSARY AT NIGHT FOR 10 DAYS)
     Route: 065
     Dates: start: 20151014
  8. FOSFOMYCIN TROMETAMOL [Concomitant]
     Indication: CYSTITIS
     Dosage: 1 INTAKE, ONCE DAILY AT NIGHT
     Route: 065
     Dates: start: 20150925, end: 20151001
  9. OFLOCET                            /00731801/ [Concomitant]
     Active Substance: OFLOXACIN
     Indication: CYSTITIS
     Dosage: 200 MG, TWICE DAILY(IN THE MORNING AND AT NIGHT FOR 5 DAYS)
     Route: 065
     Dates: start: 20151014

REACTIONS (8)
  - Hepatitis toxic [Recovered/Resolved]
  - Rash maculo-papular [Unknown]
  - Petechiae [Unknown]
  - Pruritus [Unknown]
  - Rash maculo-papular [Recovered/Resolved]
  - Lymphadenopathy [Unknown]
  - Off label use [Recovered/Resolved]
  - Face oedema [Unknown]

NARRATIVE: CASE EVENT DATE: 20151021
